FAERS Safety Report 19000602 (Version 1)
Quarter: 2021Q1

REPORT INFORMATION
  Report Type: Spontaneous
  Country: US (occurrence: US)
  Receive Date: 20210311
  Receipt Date: 20210311
  Transmission Date: 20210420
  Serious: Yes (Other)
  Sender: FDA-Public Use
  Company Number: US-PURDUE PHARMA-USA-2021-0230316

PATIENT
  Sex: Female

DRUGS (2)
  1. OXYCONTIN [Suspect]
     Active Substance: OXYCODONE HYDROCHLORIDE
     Indication: PAIN
     Dosage: 10 MG, TID
     Route: 048
     Dates: start: 2004, end: 2016
  2. HYDROMORPHONE HCL (SIMILAR TO 19?892) [Concomitant]
     Active Substance: HYDROMORPHONE HYDROCHLORIDE
     Indication: PAIN
     Dosage: 4 MG, UNK
     Route: 048
     Dates: start: 2016

REACTIONS (4)
  - Dental caries [Not Recovered/Not Resolved]
  - Off label use [Recovered/Resolved]
  - Cardiac disorder [Unknown]
  - Inflammation [Unknown]

NARRATIVE: CASE EVENT DATE: 2004
